FAERS Safety Report 13142874 (Version 3)
Quarter: 2017Q4

REPORT INFORMATION
  Report Type: Spontaneous
  Country: IT (occurrence: IT)
  Receive Date: 20170124
  Receipt Date: 20171017
  Transmission Date: 20180320
  Serious: Yes (Hospitalization)
  Sender: FDA-Public Use
  Company Number: IT-TEVA-731150ACC

PATIENT
  Age: 69 Year
  Sex: Male

DRUGS (6)
  1. OXALIPLATINO SUN - 5MG/ML CONCENTRATO PER SOLUZIONE PER INFUSIONE [Suspect]
     Active Substance: OXALIPLATIN
     Indication: GASTRIC NEOPLASM
     Route: 042
     Dates: start: 20161216, end: 20161216
  2. ONDANSETRON [Concomitant]
     Active Substance: ONDANSETRON
     Indication: PREMEDICATION
     Route: 042
     Dates: start: 20161216, end: 20161216
  3. EPIRUBICIN HYDROCHLORIDE. [Suspect]
     Active Substance: EPIRUBICIN HYDROCHLORIDE
     Indication: GASTRIC NEOPLASM
     Route: 042
     Dates: start: 20161216, end: 20161216
  4. IVEMEND - 115 MG POLVERE PER SOLUZIONE PER INFUSIONE [Concomitant]
     Indication: PREMEDICATION
     Route: 042
     Dates: start: 20161216, end: 20161216
  5. CAPECITABINA MEDAC [Suspect]
     Active Substance: CAPECITABINE
     Indication: GASTRIC NEOPLASM
     Dosage: 2300 MG DAILY
     Route: 048
     Dates: start: 20161216, end: 20161216
  6. PRETERAX - LES LABORATOIRES SERVIER [Suspect]
     Active Substance: INDAPAMIDE\PERINDOPRIL
     Indication: PRODUCT USED FOR UNKNOWN INDICATION
     Dosage: 1 DF DAILY
     Route: 048

REACTIONS (4)
  - Diarrhoea [Not Recovered/Not Resolved]
  - Septic shock [Not Recovered/Not Resolved]
  - Acute kidney injury [Not Recovered/Not Resolved]
  - Cardio-respiratory arrest [Unknown]

NARRATIVE: CASE EVENT DATE: 20161223
